FAERS Safety Report 8605142-2 (Version None)
Quarter: 2012Q3

REPORT INFORMATION
  Report Type: 
  Country: None (occurrence: None)
  Receive Date: 20120820
  Receipt Date: 20120810
  Transmission Date: 20120928
  Serious: Yes (Hospitalization)
  Sender: FDA-Public Use
  Company Number: US-BAYER-2012-036823

PATIENT
  Age: 22 Year
  Sex: Female

DRUGS (17)
  1. LEVAQUIN [Concomitant]
     Indication: BRONCHITIS
     Dosage: 500 MG, DAILY FOR 7 DAYS
     Dates: start: 20051118
  2. ZITHROMAX [Concomitant]
     Indication: COUGH
     Dosage: UNK
     Dates: start: 20050906
  3. ALLEGRA [Concomitant]
     Indication: ASTHMA
     Dosage: ONCE DAILY
     Dates: start: 20051118
  4. ATENOLOL [Concomitant]
     Dosage: UNK
     Dates: start: 20051210
  5. NASONEX [Concomitant]
     Dosage: UNK
     Dates: start: 20051210
  6. ALBUTEROL [Concomitant]
     Indication: COUGH
     Dosage: UNK UNK, PRN
     Dates: start: 20050906
  7. ATENOLOL [Concomitant]
     Indication: HYPERTENSION
     Dosage: 25 MG, UNK
     Dates: start: 20051118
  8. YASMIN [Suspect]
     Indication: MENSTRUATION IRREGULAR
     Dosage: UNK
     Dates: start: 20030901, end: 20051201
  9. FLONASE [Concomitant]
     Dosage: UNK
     Dates: start: 20051210
  10. FLUTICASONE PROPIONATE [Concomitant]
     Indication: ASTHMA
     Dosage: 250/50 ONE PUFF, BID
     Dates: start: 20051118
  11. PREDNISONE TAB [Concomitant]
     Indication: BRONCHITIS
     Dosage: 40 MG, DAILY TO BE TAPERED AND DISCONTINUED OVER TWO WEEKS
     Dates: start: 20051118
  12. MOTRIN [Concomitant]
     Indication: UPPER RESPIRATORY TRACT INFECTION
     Dosage: 600 MG, TID
     Dates: start: 20051013
  13. ROBITUSSIN DM [Concomitant]
     Indication: COUGH
     Dosage: UNK
     Dates: start: 20050906
  14. ARMODAFINIL [Concomitant]
     Indication: FUNGAL INFECTION
     Dosage: ONE
     Route: 048
     Dates: start: 20051013
  15. ENTEX CAP [Concomitant]
     Indication: UPPER RESPIRATORY TRACT INFECTION
     Dosage: UNK, DAILY
     Dates: start: 20051013
  16. FLUTICASONE PROPIONATE [Concomitant]
     Dosage: UNK
     Dates: start: 20051210
  17. COMBIVENT [Concomitant]
     Indication: ASTHMA
     Dosage: APPROXIMATELY FOUR TIMES DAILY
     Dates: start: 20051118

REACTIONS (1)
  - PULMONARY EMBOLISM [None]
